FAERS Safety Report 9011575 (Version 2)
Quarter: 2013Q1

REPORT INFORMATION
  Report Type: Spontaneous
  Country: CN (occurrence: CN)
  Receive Date: 20130108
  Receipt Date: 20130117
  Transmission Date: 20140127
  Serious: Yes (Other)
  Sender: FDA-Public Use
  Company Number: CN-ASTRAZENECA-2013SE00028

PATIENT
  Age: 42 Year
  Sex: Female

DRUGS (4)
  1. ARIMIDEX [Suspect]
     Indication: BREAST CANCER
     Route: 048
     Dates: start: 2006
  2. ZOLADEX [Suspect]
     Indication: BREAST CANCER
     Route: 058
     Dates: start: 2006
  3. CALCIUM SUPPLEMENT [Concomitant]
  4. HYDROCHLORIC ACID TWO SODIUM INJECTION [Concomitant]

REACTIONS (4)
  - Malignant neoplasm progression [Unknown]
  - Muscular weakness [Unknown]
  - Pain in extremity [Unknown]
  - Bone pain [Unknown]
